FAERS Safety Report 16139303 (Version 1)
Quarter: 2019Q1

REPORT INFORMATION
  Report Type: Spontaneous
  Country: CA (occurrence: CA)
  Receive Date: 20190330
  Receipt Date: 20190330
  Transmission Date: 20190418
  Serious: Yes (Other)
  Sender: FDA-Public Use
  Company Number: CA-CELLTRION INC.-2019CA019382

PATIENT

DRUGS (3)
  1. INFLECTRA [Suspect]
     Active Substance: INFLIXIMAB-DYYB
     Indication: COLITIS ULCERATIVE
     Dosage: 300 MG WEEK 0,2,6 WEEK THEN EVERY 8 WEEKS
     Route: 042
     Dates: start: 20190304
  2. INFLECTRA [Suspect]
     Active Substance: INFLIXIMAB-DYYB
     Dosage: 300 MG WEEK 0,2,6 WEEK THEN EVERY 8 WEEKS
     Route: 042
     Dates: start: 20190320
  3. INFLECTRA [Suspect]
     Active Substance: INFLIXIMAB-DYYB
     Dosage: 300 MG WEEK 0,2,6 WEEK THEN EVERY 8 WEEKS
     Route: 042
     Dates: start: 20190304

REACTIONS (17)
  - Pain in extremity [Unknown]
  - Blood pressure increased [Unknown]
  - Erythema [Not Recovered/Not Resolved]
  - Drug hypersensitivity [Unknown]
  - Swelling face [Not Recovered/Not Resolved]
  - Hypoaesthesia [Unknown]
  - Dizziness [Not Recovered/Not Resolved]
  - Blood pressure fluctuation [Unknown]
  - Haematochezia [Not Recovered/Not Resolved]
  - Fatigue [Unknown]
  - Product use issue [Unknown]
  - Osteoarthritis [Unknown]
  - Rosacea [Unknown]
  - Condition aggravated [Unknown]
  - Diarrhoea haemorrhagic [Not Recovered/Not Resolved]
  - Palpitations [Unknown]
  - Pain [Unknown]

NARRATIVE: CASE EVENT DATE: 201903
